FAERS Safety Report 7764422-3 (Version None)
Quarter: 2011Q3

REPORT INFORMATION
  Report Type: 
  Country: None (occurrence: None)
  Receive Date: 20110921
  Receipt Date: 20110908
  Transmission Date: 20111222
  Serious: Yes (Disabling)
  Sender: FDA-Public Use
  Company Number: FR-SANOFI-AVENTIS-2011SA031283

PATIENT
  Age: 60 Year
  Sex: Female

DRUGS (7)
  1. PREVISCAN [Concomitant]
     Route: 048
     Dates: start: 20060101
  2. KERLONE [Concomitant]
     Route: 048
  3. AMIODARONE HCL [Concomitant]
     Dates: start: 20110201, end: 20110301
  4. MULTAQ [Suspect]
     Route: 048
     Dates: start: 20110401
  5. AMIODARONE HCL [Concomitant]
     Dates: start: 20070101, end: 20101101
  6. INDAPAMIDE [Concomitant]
     Route: 048
  7. MULTAQ [Suspect]
     Indication: ATRIAL FIBRILLATION
     Route: 048
     Dates: start: 20101108, end: 20110216

REACTIONS (2)
  - ARTHRALGIA [None]
  - VISUAL BRIGHTNESS [None]
